FAERS Safety Report 24962621 (Version 4)
Quarter: 2025Q2

REPORT INFORMATION
  Report Type: Spontaneous
  Country: DE (occurrence: DE)
  Receive Date: 20250212
  Receipt Date: 20250601
  Transmission Date: 20250717
  Serious: Yes (Hospitalization, Other)
  Sender: AMGEN
  Company Number: DE-002147023-NVSC2025DE021733

PATIENT
  Sex: Female
  Weight: 57 kg

DRUGS (2)
  1. AIMOVIG [Suspect]
     Active Substance: ERENUMAB-AOOE
     Indication: Migraine
     Dosage: UNK UNK, QMO (PRE-FILLED PEN)
     Route: 065
     Dates: start: 20250120
  2. AIMOVIG [Suspect]
     Active Substance: ERENUMAB-AOOE
     Dosage: 140 MG, QMO (PRE-FILLED PEN)
     Route: 065
     Dates: start: 20250217

REACTIONS (6)
  - Rectal haemorrhage [Recovered/Resolved]
  - Diarrhoea [Recovered/Resolved]
  - Mucous stools [Recovered/Resolved]
  - Proctalgia [Recovered/Resolved]
  - Haematochezia [Recovered/Resolved]
  - Infrequent bowel movements [Recovered/Resolved]

NARRATIVE: CASE EVENT DATE: 20250121
